FAERS Safety Report 15301147 (Version 1)
Quarter: 2018Q4

REPORT INFORMATION
  Report Type: Spontaneous
  Country: IL (occurrence: IL)
  Receive Date: 20180821
  Receipt Date: 20180821
  Transmission Date: 20190204
  Serious: Yes (Death, Other)
  Sender: FDA-Public Use
  Company Number: IL-GLAXOSMITHKLINE-IL2018GSK150228

PATIENT
  Age: 55 Year
  Sex: Female

DRUGS (6)
  1. LIPITOR [Suspect]
     Active Substance: ATORVASTATIN CALCIUM
     Indication: SOMNOLENCE
     Dosage: UNK
     Route: 048
  2. CLONEX (CLONAZEPAM) [Suspect]
     Active Substance: CLONAZEPAM
     Indication: PRODUCT USED FOR UNKNOWN INDICATION
     Dosage: UNK UNK, BID
     Route: 048
  3. DEKINET (BIPERIDEN HYDROCHLORIDE) [Suspect]
     Active Substance: BIPERIDEN HYDROCHLORIDE
     Indication: SOMNOLENCE
     Dosage: UNK
     Route: 048
  4. LAMICTAL [Suspect]
     Active Substance: LAMOTRIGINE
     Indication: PRODUCT USED FOR UNKNOWN INDICATION
     Dosage: 150 MG, UNK
     Route: 048
  5. XEPLION [Suspect]
     Active Substance: PALIPERIDONE PALMITATE
     Indication: PRODUCT USED FOR UNKNOWN INDICATION
     Dosage: UNK (150)
     Dates: start: 201711
  6. IMOVANE [Suspect]
     Active Substance: ZOPICLONE
     Indication: SOMNOLENCE
     Dosage: UNK
     Route: 048

REACTIONS (7)
  - Neuroleptic malignant syndrome [Unknown]
  - Hypertonia [Unknown]
  - Sudden death [Fatal]
  - Anxiety [Unknown]
  - Psychomotor retardation [Unknown]
  - Dysstasia [Unknown]
  - Dysphagia [Unknown]

NARRATIVE: CASE EVENT DATE: 20180712
